FAERS Safety Report 14877694 (Version 3)
Quarter: 2019Q2

REPORT INFORMATION
  Report Type: Spontaneous
  Country: US (occurrence: US)
  Receive Date: 20180510
  Receipt Date: 20190613
  Transmission Date: 20190711
  Serious: Yes (Hospitalization, Other)
  Sender: FDA-Public Use
  Company Number: US-INCYTE CORPORATION-2018IN004404

PATIENT

DRUGS (2)
  1. JAKAFI [Suspect]
     Active Substance: RUXOLITINIB
     Dosage: 5 MG, BID
     Route: 048
     Dates: start: 201607
  2. JAKAFI [Suspect]
     Active Substance: RUXOLITINIB
     Indication: MYELOFIBROSIS
     Dosage: 5 MG, BID
     Route: 048
     Dates: start: 201607

REACTIONS (16)
  - Internal haemorrhage [Unknown]
  - Vomiting [Unknown]
  - Accident [Unknown]
  - Asthenia [Unknown]
  - Ulcer [Unknown]
  - Anaemia [Unknown]
  - Blood potassium increased [Unknown]
  - Mental impairment [Unknown]
  - Pneumonia [Unknown]
  - Haemoglobin decreased [Unknown]
  - Nasopharyngitis [Unknown]
  - Sepsis [Unknown]
  - Haematocrit decreased [Unknown]
  - Renal failure [Unknown]
  - Faeces discoloured [Unknown]
  - Upper respiratory tract infection [Unknown]
